FAERS Safety Report 15292554 (Version 1)
Quarter: 2018Q3

REPORT INFORMATION
  Report Type: Spontaneous
  Country: DE (occurrence: DE)
  Receive Date: 20180818
  Receipt Date: 20180818
  Transmission Date: 20181010
  Serious: Yes (Other)
  Sender: FDA-Public Use
  Company Number: DE-TEVA-2018-DE-941552

PATIENT
  Age: 55 Year
  Sex: Female
  Weight: 66 kg

DRUGS (1)
  1. TAMOXIFEN [Suspect]
     Active Substance: TAMOXIFEN
     Indication: BREAST CANCER
     Dosage: 20 MILLIGRAM DAILY;
     Route: 048
     Dates: start: 201612, end: 201712

REACTIONS (9)
  - Paraesthesia [Unknown]
  - Tendonitis [Unknown]
  - Arthralgia [Unknown]
  - Myalgia [Unknown]
  - Microembolism [Unknown]
  - Constipation [Unknown]
  - Hepatic enzyme increased [Recovered/Resolved]
  - Granuloma annulare [Not Recovered/Not Resolved]
  - Menopausal symptoms [Unknown]

NARRATIVE: CASE EVENT DATE: 201704
